FAERS Safety Report 4845187-1 (Version None)
Quarter: 2005Q4

REPORT INFORMATION
  Report Type: 
  Country: None (occurrence: None)
  Receive Date: 20051205
  Receipt Date: 20051128
  Transmission Date: 20060501
  Serious: Yes (Hospitalization)
  Sender: FDA-Public Use
  Company Number: AU-BRISTOL-MYERS SQUIBB COMPANY-13193883

PATIENT
  Age: 62 Year
  Sex: Female

DRUGS (11)
  1. MONOPLUS TABS 20 MG/12.5 MG [Suspect]
     Indication: ESSENTIAL HYPERTENSION
     Dosage: DAILY DOSE UNSPECIFIED, DURATION = LONG TERM
     Route: 048
  2. ARTHREXIN [Suspect]
     Indication: BONE PAIN
     Route: 048
     Dates: start: 20040313, end: 20040320
  3. LASIX [Suspect]
     Indication: ESSENTIAL HYPERTENSION
  4. ZANTAC [Suspect]
     Indication: PROPHYLAXIS
     Route: 048
     Dates: start: 20040313, end: 20040330
  5. SERETIDE [Concomitant]
     Indication: ASTHMA
  6. KAPANOL [Concomitant]
     Indication: BONE PAIN
     Route: 048
  7. AVANZA [Concomitant]
     Indication: DEPRESSION
     Route: 048
  8. LACTULOSE [Concomitant]
     Indication: CONSTIPATION
  9. OGEN [Concomitant]
     Indication: MENOPAUSAL SYMPTOMS
  10. NORMACOL PLUS [Concomitant]
     Indication: CONSTIPATION
     Route: 048
  11. ACETAMINOPHEN W/ CODEINE [Concomitant]
     Indication: BONE PAIN
     Route: 048

REACTIONS (7)
  - ARTHRALGIA [None]
  - C-REACTIVE PROTEIN INCREASED [None]
  - MUSCULOSKELETAL CHEST PAIN [None]
  - MYALGIA [None]
  - RASH MACULAR [None]
  - RENAL FAILURE ACUTE [None]
  - VASCULITIS [None]
